FAERS Safety Report 12091632 (Version 1)
Quarter: 2016Q1

REPORT INFORMATION
  Report Type: Spontaneous
  Country: US (occurrence: US)
  Receive Date: 20160218
  Receipt Date: 20160218
  Transmission Date: 20160526
  Serious: No
  Sender: FDA-Public Use
  Company Number: US-BIOMARINAP-US-2016-108921

PATIENT
  Age: 2 Year
  Sex: Female
  Weight: 14.2 kg

DRUGS (1)
  1. VIMIZIM [Suspect]
     Active Substance: ELOSULFASE ALFA
     Indication: PRODUCT USED FOR UNKNOWN INDICATION
     Dosage: UNK
     Route: 042
     Dates: start: 20150717

REACTIONS (3)
  - Pyrexia [Not Recovered/Not Resolved]
  - Nasal congestion [Unknown]
  - Viral infection [Unknown]

NARRATIVE: CASE EVENT DATE: 20160205
